FAERS Safety Report 13384430 (Version 1)
Quarter: 2017Q1

REPORT INFORMATION
  Report Type: Spontaneous
  Country: US (occurrence: US)
  Receive Date: 20170329
  Receipt Date: 20170329
  Transmission Date: 20170429
  Serious: Yes (Hospitalization)
  Sender: FDA-Public Use
  Company Number: None

PATIENT
  Age: 65 Year
  Sex: Male
  Weight: 78.5 kg

DRUGS (1)
  1. TRAMADOL. [Suspect]
     Active Substance: TRAMADOL
     Indication: PAIN
     Route: 048
     Dates: start: 20160717, end: 20170112

REACTIONS (6)
  - Fall [None]
  - Asthenia [None]
  - Confusional state [None]
  - Fatigue [None]
  - Sedation [None]
  - Mental status changes [None]

NARRATIVE: CASE EVENT DATE: 20170112
